FAERS Safety Report 25153086 (Version 1)
Quarter: 2025Q2

REPORT INFORMATION
  Report Type: Spontaneous
  Country: US (occurrence: US)
  Receive Date: 20250403
  Receipt Date: 20250403
  Transmission Date: 20250716
  Serious: Yes (Hospitalization, Other)
  Sender: NOVITIUM PHARMA
  Company Number: US-NOVITIUMPHARMA-2025USNVP00791

PATIENT
  Age: 36 Year
  Sex: Female

DRUGS (2)
  1. HYDROXYCHLOROQUINE SULFATE [Suspect]
     Active Substance: HYDROXYCHLOROQUINE SULFATE
     Indication: Product used for unknown indication
  2. ACETAMINOPHEN [Concomitant]
     Active Substance: ACETAMINOPHEN
     Indication: Product used for unknown indication

REACTIONS (8)
  - Brain oedema [Recovered/Resolved]
  - Pulseless electrical activity [Unknown]
  - Seizure [Unknown]
  - Cardiotoxicity [Unknown]
  - Electrocardiogram QRS complex prolonged [Unknown]
  - Hypotension [Unknown]
  - Suicide attempt [Unknown]
  - Toxicity to various agents [Unknown]
